FAERS Safety Report 10725690 (Version 1)
Quarter: 2015Q1

REPORT INFORMATION
  Report Type: Spontaneous
  Country: US (occurrence: US)
  Receive Date: 20150121
  Receipt Date: 20150121
  Transmission Date: 20150721
  Serious: No
  Sender: FDA-Public Use
  Company Number: US-BIOGENIDEC-2011BI026845

PATIENT
  Age: 46 Year
  Sex: Female

DRUGS (1)
  1. AVONEX [Suspect]
     Active Substance: INTERFERON BETA-1A
     Indication: MULTIPLE SCLEROSIS
     Route: 030
     Dates: start: 20070424

REACTIONS (8)
  - Influenza like illness [Not Recovered/Not Resolved]
  - Oral pain [Unknown]
  - Pyrexia [Unknown]
  - Rash erythematous [Not Recovered/Not Resolved]
  - Endodontic procedure [Recovered/Resolved]
  - Stomatitis [Not Recovered/Not Resolved]
  - Stress [Unknown]
  - Headache [Unknown]

NARRATIVE: CASE EVENT DATE: 20070424
